FAERS Safety Report 5156576-2 (Version None)
Quarter: 2006Q4

REPORT INFORMATION
  Report Type: 
  Country: None (occurrence: None)
  Receive Date: 20061122
  Receipt Date: 20061003
  Transmission Date: 20070319
  Serious: Yes (Hospitalization)
  Sender: FDA-Public Use
  Company Number: JP-ABBOTT-06P-087-0347013-00

PATIENT
  Age: 29 Year
  Sex: Female

DRUGS (12)
  1. SEVOFLURANE [Suspect]
     Indication: GENERAL ANAESTHESIA
     Dosage: NOT REPORTED
     Dates: start: 20030905
  2. SEVOFLURANE [Suspect]
     Dosage: NOT REPORTED
     Dates: start: 20050803
  3. THIAMYLAL SODIUM [Suspect]
     Indication: INDUCTION OF ANAESTHESIA
     Dosage: NOT REPORTED
     Dates: start: 20030905
  4. THIAMYLAL SODIUM [Suspect]
     Dosage: NOT REPORTED
     Dates: start: 20050803
  5. VECURONIUM BROMIDE [Suspect]
     Indication: INDUCTION OF ANAESTHESIA
     Dosage: NOT REPORTED
     Dates: start: 20030905
  6. VECURONIUM BROMIDE [Suspect]
     Dosage: NOT REPORTED
     Dates: start: 20050803
  7. OXYGEN [Suspect]
     Indication: GENERAL ANAESTHESIA
     Dosage: NOT REPORTED
     Dates: start: 20030905
  8. OXYGEN [Suspect]
     Dosage: NOT REPORTED
     Dates: start: 20050803
  9. NITROUS OXIDE W/ OXYGEN [Suspect]
     Indication: GENERAL ANAESTHESIA
     Dosage: NOT REPORTED
     Dates: start: 20030905
  10. NITROUS OXIDE W/ OXYGEN [Suspect]
     Dosage: NOT REPORTED
     Dates: start: 20050803
  11. FENTANYL CITRATE [Suspect]
     Indication: GENERAL ANAESTHESIA
     Dosage: NOT REPORTED
     Dates: start: 20030905
  12. LIDOCAINE [Concomitant]
     Indication: DRUG USE FOR UNKNOWN INDICATION
     Dosage: NOT REPORTED

REACTIONS (8)
  - ABDOMINAL PAIN [None]
  - CHILLS [None]
  - DIARRHOEA [None]
  - DYSPHONIA [None]
  - LIP OEDEMA [None]
  - PHARYNGOLARYNGEAL PAIN [None]
  - RESPIRATION ABNORMAL [None]
  - VOMITING [None]
